FAERS Safety Report 24203947 (Version 1)
Quarter: 2024Q3

REPORT INFORMATION
  Report Type: Spontaneous
  Country: US (occurrence: US)
  Receive Date: 20240813
  Receipt Date: 20240813
  Transmission Date: 20241017
  Serious: Yes (Hospitalization, Other)
  Sender: STRIDES
  Company Number: US-STRIDES ARCOLAB LIMITED-2024SP009985

PATIENT
  Sex: Male

DRUGS (2)
  1. CINACALCET [Suspect]
     Active Substance: CINACALCET
     Indication: Product used for unknown indication
     Dosage: UNK, (MOTHER DOSE: 60MG TWICE A DAY)
     Route: 064
  2. CARBIMAZOLE [Suspect]
     Active Substance: CARBIMAZOLE
     Indication: Product used for unknown indication
     Dosage: UNK, (MOTHER DOSE: 200 MG/DAY)
     Route: 064

REACTIONS (4)
  - Premature baby [Unknown]
  - Neonatal seizure [Unknown]
  - Hypocalcaemia [Unknown]
  - Foetal exposure during pregnancy [Unknown]
